FAERS Safety Report 5419880-6 (Version None)
Quarter: 2007Q3

REPORT INFORMATION
  Report Type: 
  Country: None (occurrence: None)
  Receive Date: 20070718
  Receipt Date: 20060814
  Transmission Date: 20080115
  Serious: Yes (Other)
  Sender: FDA-Public Use
  Company Number: 2006102380

PATIENT
  Sex: Female

DRUGS (2)
  1. CELEBREX [Suspect]
     Dates: start: 20011101
  2. VIOXX [Suspect]
     Dates: start: 20010701

REACTIONS (1)
  - CEREBROVASCULAR ACCIDENT [None]
